FAERS Safety Report 5381312-4 (Version None)
Quarter: 2007Q2

REPORT INFORMATION
  Report Type: 
  Country: None (occurrence: None)
  Receive Date: 20070629
  Receipt Date: 20061106
  Transmission Date: 20071010
  Serious: Yes (Hospitalization)
  Sender: FDA-Public Use
  Company Number: VISP-PR-0611S-0718

PATIENT
  Sex: Male

DRUGS (3)
  1. VISIPAQUE [Suspect]
     Indication: DRUG USE FOR UNKNOWN INDICATION
     Dosage: 10 ML, SINGLE DOSE, IA
     Dates: start: 20061101, end: 20061101
  2. VISIPAQUE [Suspect]
     Indication: THROMBOSIS
     Dosage: 10 ML, SINGLE DOSE, IA
     Dates: start: 20061101, end: 20061101
  3. ACTIVASE [Concomitant]

REACTIONS (1)
  - ANAPHYLACTOID REACTION [None]
